FAERS Safety Report 6960757-2 (Version None)
Quarter: 2010Q3

REPORT INFORMATION
  Report Type: 
  Country: None (occurrence: None)
  Receive Date: 20100901
  Receipt Date: 20100827
  Transmission Date: 20110219
  Serious: Yes (Hospitalization)
  Sender: FDA-Public Use
  Company Number: BR-ROCHE-716316

PATIENT
  Sex: Male
  Weight: 112 kg

DRUGS (12)
  1. RIVOTRIL [Suspect]
     Indication: ANXIETY
     Dosage: DOSE REPORTED AS 2.5 MG/ML
     Route: 065
     Dates: start: 20100601
  2. METFORMIN [Concomitant]
     Dosage: DOSE: 500 MG
     Dates: start: 20050101
  3. GLIMEPIRIDE [Concomitant]
     Dosage: DOSE: 2 MG
     Dates: start: 20050101
  4. LOSARTAN [Concomitant]
     Indication: HYPERTENSION
     Dosage: DOSE: 100 MG; DRUG REPORTED AS POTASSIC LOSARTAN
     Dates: start: 20080101
  5. ENALAPRIL MALEATE [Concomitant]
     Indication: HYPERTENSION
     Dosage: DOSE: 20 MG
     Dates: start: 20080101
  6. ATENOLOL [Concomitant]
     Indication: HYPERTENSION
     Dosage: DOSE: 20 MG
     Dates: start: 20091201
  7. APRESOLINA [Concomitant]
     Indication: HYPERTENSION
     Dosage: DOSE: 50 MG
     Dates: start: 20080101
  8. SUSTRATE [Concomitant]
     Indication: HYPERTENSION
     Dosage: DOSE: 10 MG
     Dates: start: 20091201
  9. ATENSINA [Concomitant]
     Indication: HYPERTENSION
     Dosage: DOSE: 0.100 MG
     Dates: start: 20091201
  10. DIOVAN HCT [Concomitant]
     Indication: HYPERTENSION
     Dosage: DOSE: 320 MG/ 125 MG
     Dates: start: 20080101
  11. ISORDIL [Concomitant]
     Indication: HYPERTENSION
     Dosage: DOSE: 5 MG WHEN ARTERIAL BLOOD PRESSURE IS HIGH
     Dates: start: 20091201
  12. CAPTOPRIL [Concomitant]
     Indication: HYPERTENSION
     Dosage: DOSE: 25 MG WHEN ARTERIAL BLOOD PRESSURE IS HIGH
     Dates: start: 20060101

REACTIONS (3)
  - CHAPPED LIPS [None]
  - ISCHAEMIA [None]
  - LIP DRY [None]
